FAERS Safety Report 4752255-1 (Version None)
Quarter: 2005Q3

REPORT INFORMATION
  Report Type: 
  Country: None (occurrence: None)
  Receive Date: 20050823
  Receipt Date: 20050823
  Transmission Date: 20060218
  Serious: Yes (Hospitalization, Other)
  Sender: FDA-Public Use
  Company Number: None

PATIENT
  Sex: Male
  Weight: 95.8 kg

DRUGS (10)
  1. TEMOZOLOMIDE [Suspect]
     Indication: GLIOBLASTOMA MULTIFORME
     Dosage: SEE IMAGE
     Dates: start: 20050614, end: 20050618
  2. TEMOZOLOMIDE [Suspect]
     Indication: GLIOBLASTOMA MULTIFORME
     Dosage: SEE IMAGE
     Dates: start: 20050404
  3. RADIATION [Suspect]
     Dosage: SEE IMAGE
     Dates: start: 20050404
  4. TEMOZOLOMIDE [Suspect]
     Dosage: SEE IMAGE
     Dates: start: 20050614, end: 20050618
  5. TEMOZOLOMIDE [Suspect]
     Dosage: SEE IMAGE
     Dates: start: 20050404
  6. IRINOTECAN [Suspect]
     Dosage: SEE IMAGE
     Dates: start: 20050614, end: 20050628
  7. IRINOTECAN [Suspect]
     Dosage: SEE IMAGE
     Dates: start: 20050404
  8. LISINOPRIL [Concomitant]
  9. PEPCID [Concomitant]
  10. PRAVACHOL [Concomitant]

REACTIONS (14)
  - ABASIA [None]
  - ASTHENIA [None]
  - CONVULSION [None]
  - DEEP VEIN THROMBOSIS [None]
  - DISEASE PROGRESSION [None]
  - DISORIENTATION [None]
  - FATIGUE [None]
  - GENERAL PHYSICAL HEALTH DETERIORATION [None]
  - HEADACHE [None]
  - LETHARGY [None]
  - MALAISE [None]
  - MOBILITY DECREASED [None]
  - PULMONARY EMBOLISM [None]
  - URINARY INCONTINENCE [None]
